FAERS Safety Report 10419167 (Version 1)
Quarter: 2014Q2

REPORT INFORMATION
  Report Type: Spontaneous
  Country: US (occurrence: None)
  Receive Date: 20140617
  Receipt Date: 20140617
  Transmission Date: 20141212
  Serious: Yes (Other)
  Sender: FDA-Public Use
  Company Number: 1251261

PATIENT
  Age: 73 Year
  Sex: Male
  Weight: 85.33 kg

DRUGS (5)
  1. ACTERMA 5% TWO INFUSION DOSES [Suspect]
     Indication: TEMPORAL ARTERITIS
     Dosage: 400MG/20ML, (8 MG/KG, 1 IN 4 WK), INTRAVENOUS (NOT OTHERWISE SPECIFIED)
     Dates: start: 20120601
  2. ZOLOFT (SERTRALINE HYDROCHLORIDE) [Concomitant]
  3. ASPIRIN [Concomitant]
  4. LEVOTHYROXINE SODIUM [Concomitant]
  5. RISPERIDONE [Concomitant]

REACTIONS (1)
  - Thrombocytopenia [None]
